FAERS Safety Report 14227679 (Version 2)
Quarter: 2018Q1

REPORT INFORMATION
  Report Type: Spontaneous
  Country: CA (occurrence: CA)
  Receive Date: 20171127
  Receipt Date: 20180126
  Transmission Date: 20180508
  Serious: Yes (Other)
  Sender: FDA-Public Use
  Company Number: CA-OTSUKA-2016_018399

PATIENT
  Sex: Male

DRUGS (3)
  1. ZYPREXA [Concomitant]
     Active Substance: OLANZAPINE
     Indication: PRODUCT USED FOR UNKNOWN INDICATION
     Dosage: UNK
     Route: 065
  2. ABILIFY [Suspect]
     Active Substance: ARIPIPRAZOLE
     Indication: PRODUCT USED FOR UNKNOWN INDICATION
     Dosage: UNK
     Route: 065
  3. CLOPIXOL [Suspect]
     Active Substance: ZUCLOPENTHIXOL ACETATE
     Indication: PRODUCT USED FOR UNKNOWN INDICATION
     Dosage: 50 MG, QD
     Route: 030

REACTIONS (12)
  - Dysphonia [Unknown]
  - Muscle spasms [Unknown]
  - Speech disorder [Unknown]
  - Tardive dyskinesia [Unknown]
  - Muscular weakness [Unknown]
  - Nerve injury [Unknown]
  - Dyspnoea [Unknown]
  - Chest pain [Unknown]
  - Myopathy [Unknown]
  - Gait disturbance [Unknown]
  - Myalgia [Unknown]
  - Dystonia [Unknown]
